FAERS Safety Report 4649122-0 (Version None)
Quarter: 2005Q2

REPORT INFORMATION
  Report Type: 
  Country: None (occurrence: None)
  Receive Date: 20050429
  Receipt Date: 20050418
  Transmission Date: 20051028
  Serious: Yes (Hospitalization)
  Sender: FDA-Public Use
  Company Number: JP-GLAXOSMITHKLINE-B0378529A

PATIENT
  Age: 6 Year
  Sex: Male
  Weight: 25.5 kg

DRUGS (30)
  1. ALKERAN [Suspect]
     Indication: ALLOGENIC BONE MARROW TRANSPLANTATION THERAPY
     Dosage: 70MGM2 PER DAY
     Route: 042
     Dates: start: 20040828, end: 20040830
  2. GRAN [Concomitant]
     Dates: start: 20040910, end: 20041003
  3. TACROLIMUS HYDRATE [Concomitant]
     Indication: IMMUNOSUPPRESSION
     Route: 065
     Dates: start: 20040901
  4. METHOTREXATE [Concomitant]
     Indication: IMMUNOSUPPRESSION
     Route: 065
     Dates: start: 20040903, end: 20040903
  5. METHOTREXATE [Concomitant]
     Route: 065
     Dates: start: 20040905, end: 20040905
  6. METHOTREXATE [Concomitant]
     Route: 065
     Dates: start: 20040908, end: 20040908
  7. METHOTREXATE [Concomitant]
     Route: 065
     Dates: start: 20040913, end: 20040913
  8. BAKTAR [Concomitant]
     Route: 048
     Dates: start: 20040720
  9. POLYMYXIN B SULFATE [Concomitant]
     Route: 048
     Dates: start: 20040727
  10. ALOSITOL [Concomitant]
     Route: 048
     Dates: start: 20040823, end: 20040916
  11. URSO 250 [Concomitant]
     Route: 048
     Dates: start: 20040827
  12. JUVELA [Concomitant]
     Route: 048
     Dates: start: 20040827
  13. ZOVIRAX [Concomitant]
     Route: 048
     Dates: start: 20040816
  14. CLAFORAN [Concomitant]
     Dates: start: 20040824, end: 20040908
  15. KYTRIL [Concomitant]
     Route: 042
     Dates: start: 20040828, end: 20040901
  16. DIAMOX [Concomitant]
     Dates: start: 20040828, end: 20040830
  17. AMBROXOL [Concomitant]
     Route: 042
     Dates: start: 20040831, end: 20040901
  18. DECADRON [Concomitant]
     Dates: end: 20040901
  19. ATARAX [Concomitant]
  20. MEYLON [Concomitant]
     Route: 042
     Dates: start: 20040903
  21. CARBENIN [Concomitant]
     Route: 042
     Dates: start: 20040908, end: 20040912
  22. CARBENIN [Concomitant]
     Route: 042
     Dates: start: 20040929, end: 20041002
  23. DIFLUCAN [Concomitant]
     Route: 042
     Dates: start: 20040908, end: 20040926
  24. SANDOSTATIN [Concomitant]
     Route: 058
     Dates: start: 20040911, end: 20040929
  25. OMEGACIN [Concomitant]
     Route: 042
     Dates: start: 20040912, end: 20040913
  26. MINOCYCLINE HCL [Concomitant]
     Route: 042
     Dates: start: 20040912, end: 20040921
  27. GASTER [Concomitant]
     Dates: start: 20040914, end: 20040921
  28. MODACIN [Concomitant]
     Route: 042
     Dates: start: 20041004, end: 20041008
  29. SOLU-MEDROL [Concomitant]
     Dates: start: 20040924
  30. KEITEN [Concomitant]
     Route: 042
     Dates: start: 20041008, end: 20041018

REACTIONS (1)
  - THROMBOTIC MICROANGIOPATHY [None]
